FAERS Safety Report 6502290-8 (Version None)
Quarter: 2009Q4

REPORT INFORMATION
  Report Type: 
  Country: None (occurrence: None)
  Receive Date: 20091216
  Receipt Date: 20091026
  Transmission Date: 20100525
  Serious: No
  Sender: FDA-Public Use
  Company Number: US-ABBOTT-09P-163-0605520-00

PATIENT
  Sex: Male
  Weight: 81.72 kg

DRUGS (10)
  1. TRILIPIX [Suspect]
     Indication: BLOOD CHOLESTEROL INCREASED
     Route: 048
     Dates: start: 20091012
  2. NOVOLOG [Concomitant]
     Indication: DIABETES MELLITUS
     Dosage: 20 UNITS OF 70/30 TWICE DAILY
     Route: 058
  3. ADALAT [Concomitant]
     Indication: HYPERTENSION
     Route: 048
  4. METOPROLOL TARTRATE [Concomitant]
     Indication: CARDIAC DISORDER
     Dosage: 25MG (1/2 TAB) BID
     Route: 048
  5. ASPIRIN [Concomitant]
     Indication: STENT PLACEMENT
     Route: 048
  6. GLUCOPHAGE [Concomitant]
     Indication: DIABETES MELLITUS
     Route: 048
  7. PLAVIX [Concomitant]
     Indication: STENT PLACEMENT
     Route: 048
  8. KEPPRA [Concomitant]
     Indication: TRIGEMINAL NEURALGIA
     Dosage: 1.5 TABLS BID
     Route: 048
  9. PRILOSEC [Concomitant]
     Indication: GASTROOESOPHAGEAL REFLUX DISEASE
     Route: 048
  10. LISINOPRIL [Concomitant]
     Indication: HYPERTENSION
     Route: 048

REACTIONS (2)
  - BLOOD GLUCOSE FLUCTUATION [None]
  - PALPITATIONS [None]
